FAERS Safety Report 17754677 (Version 1)
Quarter: 2020Q2

REPORT INFORMATION
  Report Type: Spontaneous
  Country: US (occurrence: US)
  Receive Date: 20200506
  Receipt Date: 20200506
  Transmission Date: 20200714
  Serious: No
  Sender: FDA-Public Use
  Company Number: US-GLENMARK PHARMACEUTICALS-2020GMK047425

PATIENT

DRUGS (4)
  1. CLOTRIMAZOLE. [Concomitant]
     Active Substance: CLOTRIMAZOLE
     Indication: FUNGAL INFECTION
     Dosage: UNK, BID; USED 5 TIMES
     Route: 061
  2. TACROLIMUS. [Suspect]
     Active Substance: TACROLIMUS
     Indication: FUNGAL INFECTION
     Dosage: UNK, BID (TWICE DAILY AS DIRECTED)
     Route: 061
  3. CLOTRIMAZOLE. [Concomitant]
     Active Substance: CLOTRIMAZOLE
     Indication: LIP INFECTION
  4. TACROLIMUS. [Suspect]
     Active Substance: TACROLIMUS
     Indication: LIP PAIN

REACTIONS (1)
  - Product use in unapproved indication [Unknown]
